FAERS Safety Report 23697034 (Version 1)
Quarter: 2024Q2

REPORT INFORMATION
  Report Type: Spontaneous
  Country: US (occurrence: None)
  Receive Date: 20240401
  Receipt Date: 20240401
  Transmission Date: 20240715
  Serious: No
  Sender: FDA-Public Use
  Company Number: None

PATIENT
  Sex: 0

DRUGS (1)
  1. XDEMVY [Suspect]
     Active Substance: LOTILANER

REACTIONS (2)
  - Eye swelling [None]
  - Vision blurred [None]
